FAERS Safety Report 4917449-0 (Version None)
Quarter: 2006Q1

REPORT INFORMATION
  Report Type: 
  Country: None (occurrence: None)
  Receive Date: 20060221
  Receipt Date: 20050922
  Transmission Date: 20060701
  Serious: Yes (Hospitalization)
  Sender: FDA-Public Use
  Company Number: US-MERCK-0509USA03614

PATIENT
  Age: 70 Year
  Sex: Female
  Weight: 62 kg

DRUGS (4)
  1. VIOXX [Suspect]
     Indication: ARTHRALGIA
     Route: 048
     Dates: start: 20001127, end: 20020321
  2. ATENOLOL [Concomitant]
     Route: 065
     Dates: start: 19970220, end: 20020401
  3. [THERAPY UNSPECIFIED] [Concomitant]
     Route: 065
  4. NAPROXEN [Concomitant]
     Indication: ARTHRALGIA
     Route: 065
     Dates: start: 19971014, end: 20031128

REACTIONS (10)
  - ARTHROPATHY [None]
  - CHEST DISCOMFORT [None]
  - CHEST PAIN [None]
  - CORONARY ARTERY DISEASE [None]
  - CORONARY ARTERY SURGERY [None]
  - HERNIA REPAIR [None]
  - INGUINAL HERNIA [None]
  - MYOCARDIAL INFARCTION [None]
  - OVARIAN DISORDER [None]
  - UTERINE DISORDER [None]
